FAERS Safety Report 4309359-7 (Version None)
Quarter: 2004Q1

REPORT INFORMATION
  Report Type: 
  Country: None (occurrence: None)
  Receive Date: 20040302
  Receipt Date: 20040116
  Transmission Date: 20041129
  Serious: Yes (Death)
  Sender: FDA-Public Use
  Company Number: WAES 0402GBR00039

PATIENT
  Age: 75 Year
  Sex: Male

DRUGS (6)
  1. ALBUTEROL [Concomitant]
     Indication: ASTHMA
     Route: 055
  2. AMILORIDE HYDROCHLORIDE AND FUROSEMIDE [Concomitant]
     Indication: CARDIAC FAILURE CONGESTIVE
     Dates: start: 19900411, end: 20010409
  3. SINGULAIR [Suspect]
     Indication: ASTHMA
     Route: 048
     Dates: start: 20000720, end: 20001201
  4. SALMETEROL [Concomitant]
     Indication: ASTHMA
     Route: 055
     Dates: start: 20000720, end: 20011206
  5. WARFARIN [Concomitant]
     Indication: DEEP VEIN THROMBOSIS
     Dates: start: 19940101, end: 20030304
  6. WARFARIN [Concomitant]
     Indication: PULMONARY EMBOLISM
     Dates: start: 19940101, end: 20030304

REACTIONS (3)
  - CREUTZFELDT-JAKOB DISEASE [None]
  - ENCEPHALOPATHY [None]
  - GLOMERULONEPHRITIS PROLIFERATIVE [None]
